FAERS Safety Report 15951332 (Version 1)
Quarter: 2019Q1

REPORT INFORMATION
  Report Type: Spontaneous
  Country: US (occurrence: US)
  Receive Date: 20190211
  Receipt Date: 20190211
  Transmission Date: 20190417
  Serious: No
  Sender: FDA-Public Use
  Company Number: US-GLAXOSMITHKLINE-US2019GSK017813

PATIENT
  Sex: Female

DRUGS (1)
  1. MUPIROCINE [Suspect]
     Active Substance: MUPIROCIN

REACTIONS (1)
  - Hypersensitivity [Unknown]
